FAERS Safety Report 25663995 (Version 1)
Quarter: 2025Q3

REPORT INFORMATION
  Report Type: Spontaneous
  Country: US (occurrence: None)
  Receive Date: 20250808
  Receipt Date: 20250808
  Transmission Date: 20251020
  Serious: Yes (unspecified)
  Sender: FDA-CTU
  Company Number: None

PATIENT
  Sex: Female

DRUGS (1)
  1. HERBALS\MITRAGYNINE [Suspect]
     Active Substance: HERBALS\MITRAGYNINE

REACTIONS (11)
  - Dependence [None]
  - Withdrawal syndrome [None]
  - Depression [None]
  - Anhedonia [None]
  - Gastrointestinal disorder [None]
  - Hepatic pain [None]
  - Drug dependence [None]
  - Mental disorder [None]
  - Physical deconditioning [None]
  - Loss of personal independence in daily activities [None]
  - Dependence [None]

NARRATIVE: CASE EVENT DATE: 20250808
